FAERS Safety Report 6829736-X (Version None)
Quarter: 2010Q3

REPORT INFORMATION
  Report Type: 
  Country: None (occurrence: None)
  Receive Date: 20100709
  Receipt Date: 20070517
  Transmission Date: 20110219
  Serious: No
  Sender: FDA-Public Use
  Company Number: US-PFIZER INC-2007009025

PATIENT
  Sex: Female
  Weight: 95.25 kg

DRUGS (3)
  1. CHANTIX [Suspect]
     Indication: SMOKING CESSATION THERAPY
     Route: 048
     Dates: start: 20061201
  2. XANAX [Concomitant]
     Route: 048
  3. PRAVACHOL [Concomitant]
     Route: 048

REACTIONS (1)
  - NAUSEA [None]
